FAERS Safety Report 4985944-4 (Version None)
Quarter: 2006Q2

REPORT INFORMATION
  Report Type: 
  Country: None (occurrence: None)
  Receive Date: 20060428
  Receipt Date: 20060418
  Transmission Date: 20061013
  Serious: Yes (Hospitalization)
  Sender: FDA-Public Use
  Company Number: 2006UW06865

PATIENT
  Age: 53 Year
  Sex: Male
  Weight: 102.5 kg

DRUGS (7)
  1. CRESTOR [Suspect]
     Indication: BLOOD CHOLESTEROL INCREASED
     Route: 048
     Dates: start: 20060201, end: 20060401
  2. GLUCOPHAGE [Concomitant]
     Indication: DIABETES MELLITUS NON-INSULIN-DEPENDENT
  3. NEURONTIN [Concomitant]
     Indication: PAIN IN EXTREMITY
  4. OXYCODONE HCL [Concomitant]
  5. BUSPAR [Concomitant]
     Indication: ANXIETY
  6. LEXAPRO [Concomitant]
     Indication: DEPRESSION
  7. BLOOD PRESSURE MEDICATION [Concomitant]
     Indication: BLOOD PRESSURE INCREASED

REACTIONS (4)
  - HEPATITIS [None]
  - INFLUENZA LIKE ILLNESS [None]
  - MYALGIA [None]
  - RENAL FAILURE [None]
